FAERS Safety Report 7429443-9 (Version None)
Quarter: 2011Q2

REPORT INFORMATION
  Report Type: 
  Country: None (occurrence: None)
  Receive Date: 20110414
  Receipt Date: 20110406
  Transmission Date: 20111010
  Serious: Yes (Death, Hospitalization)
  Sender: FDA-Public Use
  Company Number: UTC-006163

PATIENT
  Age: 75 Year
  Sex: Female
  Weight: 62 kg

DRUGS (5)
  1. REVATIO [Concomitant]
  2. DIURETICS [Concomitant]
  3. TYVASO [Suspect]
     Indication: SCLERODERMA
     Dosage: 54 MCG, INHALATION
     Route: 055
     Dates: start: 20110321
  4. TYVASO [Suspect]
     Indication: COR PULMONALE CHRONIC
     Dosage: 54 MCG, INHALATION
     Route: 055
     Dates: start: 20110321
  5. COUMADIN [Concomitant]

REACTIONS (1)
  - DEATH [None]
